FAERS Safety Report 6044298-5 (Version None)
Quarter: 2009Q1

REPORT INFORMATION
  Report Type: 
  Country: None (occurrence: None)
  Receive Date: 20090120
  Receipt Date: 20080507
  Transmission Date: 20090719
  Serious: No
  Sender: FDA-Public Use
  Company Number: US-BAYER-200812215BCC

PATIENT
  Age: 72 Year
  Sex: Female
  Weight: 79 kg

DRUGS (5)
  1. ALEVE [Suspect]
     Indication: ARTHRALGIA
     Route: 048
  2. MICRO-K [Concomitant]
  3. CHLORTHALIDONE [Concomitant]
  4. COZAAR [Concomitant]
  5. HYDRODIURIL [Concomitant]

REACTIONS (1)
  - ARTHRALGIA [None]
